FAERS Safety Report 8573489-4 (Version None)
Quarter: 2012Q3

REPORT INFORMATION
  Report Type: 
  Country: None (occurrence: None)
  Receive Date: 20120806
  Receipt Date: 20120731
  Transmission Date: 20120928
  Serious: Yes (Other)
  Sender: FDA-Public Use
  Company Number: US-BAYER-2012-078122

PATIENT
  Sex: Female

DRUGS (1)
  1. MIRENA [Suspect]
     Dosage: 20 MCG/24HR, CONT
     Route: 015
     Dates: start: 20120624, end: 20120731

REACTIONS (4)
  - VAGINAL DISCHARGE [None]
  - DEVICE EXPULSION [None]
  - VAGINAL HAEMORRHAGE [None]
  - PAIN [None]
